FAERS Safety Report 24342648 (Version 1)
Quarter: 2024Q3

REPORT INFORMATION
  Report Type: Spontaneous
  Country: CA (occurrence: CA)
  Receive Date: 20240920
  Receipt Date: 20240920
  Transmission Date: 20241017
  Serious: Yes (Other)
  Sender: CELLTRION
  Company Number: CA-CELLTRION INC.-2024CA021541

PATIENT

DRUGS (6)
  1. YUFLYMA [Suspect]
     Active Substance: ADALIMUMAB-AATY
     Indication: Colitis ulcerative
     Dosage: 40 MG EVERY 2 WEEKS (PRESCRIPTION: 160MG WEEK 0, 80MG WEEK 2, THEN 40MG EOW STARTING WEEK 4)
     Route: 058
     Dates: start: 20240725
  2. YUFLYMA [Suspect]
     Active Substance: ADALIMUMAB-AATY
     Dosage: PATIENT STARTED 80MG WEEKLY
     Route: 058
     Dates: start: 20240905
  3. YUFLYMA [Suspect]
     Active Substance: ADALIMUMAB-AATY
     Dosage: THEY HAD HIM TAKE 4 NEEDLE INJECTIONS TIMES 4 (40MG=160MG/WEEK 1)
     Route: 058
  4. PREDNISONE [Concomitant]
     Active Substance: PREDNISONE
     Dosage: TAPERING DOSE
  5. ROSUVASTATIN [Concomitant]
     Active Substance: ROSUVASTATIN\ROSUVASTATIN CALCIUM
  6. DICLOFENAC [Concomitant]
     Active Substance: DICLOFENAC
     Dosage: AS NEEDED

REACTIONS (2)
  - Colitis ulcerative [Recovering/Resolving]
  - Intentional product use issue [Not Recovered/Not Resolved]
